FAERS Safety Report 20632176 (Version 7)
Quarter: 2022Q4

REPORT INFORMATION
  Report Type: Spontaneous
  Country: JP (occurrence: JP)
  Receive Date: 20220324
  Receipt Date: 20221230
  Transmission Date: 20230113
  Serious: Yes (Other)
  Sender: FDA-Public Use
  Company Number: JP-NOVARTISPH-NVSJ2022JP003382

PATIENT
  Age: 51 Year
  Sex: Female
  Weight: 80.9 kg

DRUGS (4)
  1. ILARIS [Suspect]
     Active Substance: CANAKINUMAB
     Indication: Cryopyrin associated periodic syndrome
     Dosage: 150 MG, QD
     Route: 058
     Dates: start: 20220214
  2. ILARIS [Suspect]
     Active Substance: CANAKINUMAB
     Dosage: 150 MG,EVERY 7 WEEKS
     Route: 058
  3. ILARIS [Suspect]
     Active Substance: CANAKINUMAB
     Dosage: 150 MG,EVERY 9 WEEKS
     Route: 058
  4. ILARIS [Suspect]
     Active Substance: CANAKINUMAB
     Dosage: 150 MG,EVERY 8 WEEKS
     Route: 058

REACTIONS (9)
  - Haematochezia [Recovered/Resolved]
  - Diarrhoea [Not Recovered/Not Resolved]
  - Pain [Unknown]
  - Abdominal pain [Unknown]
  - Musculoskeletal stiffness [Unknown]
  - Visual impairment [Not Recovered/Not Resolved]
  - Pyrexia [Unknown]
  - Malaise [Recovered/Resolved]
  - Therapeutic response decreased [Unknown]

NARRATIVE: CASE EVENT DATE: 20220214
